FAERS Safety Report 4586614-7 (Version None)
Quarter: 2005Q1

REPORT INFORMATION
  Report Type: 
  Country: None (occurrence: None)
  Receive Date: 20050218
  Receipt Date: 20040709
  Transmission Date: 20050727
  Serious: No
  Sender: FDA-Public Use
  Company Number: US-BRISTOL-MYERS SQUIBB COMPANY-12639407

PATIENT
  Sex: Male

DRUGS (4)
  1. TAXOL [Suspect]
     Indication: PROSTATE CANCER
     Route: 042
     Dates: start: 20040709, end: 20040709
  2. TAGAMET [Concomitant]
     Indication: PREMEDICATION
     Route: 042
  3. BENADRYL [Concomitant]
     Route: 042
  4. DECADRON [Concomitant]
     Route: 042

REACTIONS (1)
  - EXTRAVASATION [None]
